FAERS Safety Report 5778644-4 (Version None)
Quarter: 2008Q2

REPORT INFORMATION
  Report Type: 
  Country: None (occurrence: None)
  Receive Date: 20080619
  Receipt Date: 20080612
  Transmission Date: 20081010
  Serious: Yes (Hospitalization, Other)
  Sender: FDA-Public Use
  Company Number: A0733756A

PATIENT
  Sex: Female

DRUGS (10)
  1. AVANDIA [Suspect]
     Indication: DRUG USE FOR UNKNOWN INDICATION
     Dosage: 4MG TWICE PER DAY
     Route: 048
     Dates: end: 20070719
  2. CARDIZEM [Concomitant]
     Dosage: 300MG PER DAY
     Route: 048
  3. TAGAMET [Concomitant]
     Dosage: 400MG TWICE PER DAY
     Route: 048
  4. LASIX [Concomitant]
     Dosage: 80MG TWICE PER DAY
     Route: 048
  5. KDUR [Concomitant]
     Dosage: 20MEQ TWICE PER DAY
     Route: 048
  6. XOPENEX NEBS [Concomitant]
  7. OXYGEN [Concomitant]
  8. ALBUTEROL [Concomitant]
  9. PLAVIX [Concomitant]
     Dosage: 75MG PER DAY
     Route: 048
  10. NEURONTIN [Concomitant]

REACTIONS (12)
  - BRADYARRHYTHMIA [None]
  - CARDIAC FAILURE CONGESTIVE [None]
  - CARDIOGENIC SHOCK [None]
  - CARDIOMEGALY [None]
  - CARDIOMYOPATHY [None]
  - DEEP VEIN THROMBOSIS [None]
  - MYOCARDIAL INFARCTION [None]
  - PULMONARY EMBOLISM [None]
  - PULMONARY HYPERTENSION [None]
  - RESPIRATORY FAILURE [None]
  - TACHYARRHYTHMIA [None]
  - TRICUSPID VALVE INCOMPETENCE [None]
